FAERS Safety Report 4539325-8 (Version None)
Quarter: 2004Q4

REPORT INFORMATION
  Report Type: 
  Country: None (occurrence: None)
  Receive Date: 20041222
  Receipt Date: 20041209
  Transmission Date: 20050328
  Serious: Yes (Other)
  Sender: FDA-Public Use
  Company Number: 2004110862

PATIENT

DRUGS (3)
  1. SULPERAZON (SULBACTAM, CEFOPERAZONE) [Suspect]
     Indication: ILL-DEFINED DISORDER
     Dosage: INTRAVENOUS
     Route: 042
  2. DOXORUBICIN HCL [Concomitant]
  3. MITOMYCIN [Concomitant]

REACTIONS (1)
  - WHITE BLOOD CELL COUNT DECREASED [None]
